FAERS Safety Report 21068302 (Version 1)
Quarter: 2022Q3

REPORT INFORMATION
  Report Type: Spontaneous
  Country: US (occurrence: US)
  Receive Date: 20220712
  Receipt Date: 20220712
  Transmission Date: 20221026
  Serious: No
  Sender: FDA-Public Use
  Company Number: US-GLENMARK PHARMACEUTICALS-2022GMK071094

PATIENT

DRUGS (1)
  1. TELMISARTAN [Suspect]
     Active Substance: TELMISARTAN
     Indication: Hypertension
     Dosage: UNK
     Route: 048
     Dates: start: 2022

REACTIONS (4)
  - Underdose [Unknown]
  - Product administration error [Unknown]
  - Therapeutic product effect incomplete [Unknown]
  - Product physical issue [Unknown]

NARRATIVE: CASE EVENT DATE: 20220101
